FAERS Safety Report 19709307 (Version 2)
Quarter: 2021Q3

REPORT INFORMATION
  Report Type: Spontaneous
  Country: CA (occurrence: CA)
  Receive Date: 20210816
  Receipt Date: 20210824
  Transmission Date: 20211014
  Serious: Yes (Other)
  Sender: FDA-Public Use
  Company Number: CA-PFIZER INC-202101005333

PATIENT
  Age: 53 Year
  Sex: Male

DRUGS (11)
  1. LINEZOLID. [Suspect]
     Active Substance: LINEZOLID
     Indication: MYCOBACTERIUM AVIUM COMPLEX INFECTION
  2. RITUXIMAB. [Concomitant]
     Active Substance: RITUXIMAB
     Indication: MYCOBACTERIUM AVIUM COMPLEX INFECTION
  3. ETHAMBUTOL [Concomitant]
     Active Substance: ETHAMBUTOL HYDROCHLORIDE
     Indication: MYCOBACTERIUM AVIUM COMPLEX INFECTION
     Dosage: UNK
  4. CLOFAZIMINE [Concomitant]
     Active Substance: CLOFAZIMINE
     Indication: MYCOBACTERIUM ABSCESSUS INFECTION
     Dosage: UNK
  5. CEFOXITIN [Concomitant]
     Active Substance: CEFOXITIN SODIUM
     Indication: MYCOBACTERIUM AVIUM COMPLEX INFECTION
  6. CLOFAZIMINE [Concomitant]
     Active Substance: CLOFAZIMINE
     Indication: MYCOBACTERIUM AVIUM COMPLEX INFECTION
  7. RIFABUTIN. [Concomitant]
     Active Substance: RIFABUTIN
     Indication: MYCOBACTERIUM AVIUM COMPLEX INFECTION
     Dosage: UNK
  8. RITUXIMAB. [Concomitant]
     Active Substance: RITUXIMAB
     Indication: MYCOBACTERIUM ABSCESSUS INFECTION
     Dosage: 375 MG/M2 WITH DOSES AT MONTHS 0, 1, 6, AND 12
  9. LINEZOLID. [Suspect]
     Active Substance: LINEZOLID
     Indication: MYCOBACTERIUM ABSCESSUS INFECTION
     Dosage: UNK
  10. AZITHROMYCIN ANHYDROUS. [Concomitant]
     Active Substance: AZITHROMYCIN ANHYDROUS
     Indication: MYCOBACTERIUM AVIUM COMPLEX INFECTION
     Dosage: UNK
  11. CEFOXITIN [Concomitant]
     Active Substance: CEFOXITIN SODIUM
     Indication: MYCOBACTERIUM ABSCESSUS INFECTION
     Dosage: UNK

REACTIONS (4)
  - Drug effective for unapproved indication [Unknown]
  - Thrombocytopenia [Unknown]
  - Toxicity to various agents [Unknown]
  - Off label use [Unknown]
